FAERS Safety Report 11077938 (Version 1)
Quarter: 2015Q2

REPORT INFORMATION
  Report Type: Spontaneous
  Country: US (occurrence: None)
  Receive Date: 20150429
  Receipt Date: 20150429
  Transmission Date: 20150821
  Serious: Yes (Death, Hospitalization)
  Sender: FDA-Public Use
  Company Number: None

PATIENT
  Age: 67 Year
  Sex: Male
  Weight: 96.8 kg

DRUGS (2)
  1. 5-FLUOROURACIL (5-FU) [Suspect]
     Active Substance: FLUOROURACIL
     Dates: start: 20070907
  2. MITOMYCIN C [Suspect]
     Active Substance: MITOMYCIN
     Dates: end: 20070904

REACTIONS (6)
  - Marrow hyperplasia [None]
  - Myelofibrosis [None]
  - Hepatic function abnormal [None]
  - Blood product transfusion dependent [None]
  - Pancytopenia [None]
  - Myelodysplastic syndrome [None]

NARRATIVE: CASE EVENT DATE: 20130819
